FAERS Safety Report 6500382-0 (Version None)
Quarter: 2009Q4

REPORT INFORMATION
  Report Type: 
  Country: None (occurrence: None)
  Receive Date: 20091216
  Receipt Date: 20091205
  Transmission Date: 20100525
  Serious: Yes (Hospitalization, Other)
  Sender: FDA-Public Use
  Company Number: PHHY2009US54184

PATIENT
  Sex: Female

DRUGS (1)
  1. EXJADE [Suspect]
     Dosage: 1625 MG, DAILY
     Route: 048
     Dates: start: 20071210, end: 20091130

REACTIONS (3)
  - CHOLECYSTECTOMY [None]
  - DIARRHOEA [None]
  - WEIGHT DECREASED [None]
